FAERS Safety Report 6832683-0 (Version None)
Quarter: 2010Q3

REPORT INFORMATION
  Report Type: 
  Country: None (occurrence: None)
  Receive Date: 20100712
  Receipt Date: 20070515
  Transmission Date: 20110219
  Serious: No
  Sender: FDA-Public Use
  Company Number: US-PFIZER INC-2007020649

PATIENT
  Sex: Female
  Weight: 58.06 kg

DRUGS (3)
  1. VARENICLINE [Suspect]
     Indication: SMOKING CESSATION THERAPY
     Route: 048
     Dates: start: 20070312
  2. ANTIHYPERTENSIVES [Concomitant]
     Indication: BLOOD PRESSURE
     Route: 048
  3. THOMAPYRIN N [Concomitant]
     Route: 048

REACTIONS (5)
  - ANXIETY [None]
  - DRY MOUTH [None]
  - DYSPHAGIA [None]
  - INCREASED UPPER AIRWAY SECRETION [None]
  - INSOMNIA [None]
